FAERS Safety Report 8116420-8 (Version None)
Quarter: 2012Q1

REPORT INFORMATION
  Report Type: 
  Country: None (occurrence: None)
  Receive Date: 20120206
  Receipt Date: 20120202
  Transmission Date: 20120608
  Serious: No
  Sender: FDA-Public Use
  Company Number: US-PFIZER INC-2012030016

PATIENT
  Sex: Female
  Weight: 92.063 kg

DRUGS (8)
  1. CHANTIX [Suspect]
     Indication: SMOKING CESSATION THERAPY
     Dosage: 0.5 MG, DAILY
     Dates: start: 20120131
  2. XANAX [Suspect]
     Dosage: UNK
  3. DICLOFENAC SODIUM [Suspect]
     Dosage: UNK
  4. CYCLOBENZAPRINE [Suspect]
     Indication: MUSCLE RELAXANT THERAPY
     Dosage: UNK
  5. CYMBALTA [Suspect]
     Dosage: UNK
  6. NEURONTIN [Suspect]
     Dosage: UNK
  7. VICODIN [Suspect]
     Dosage: UNK
  8. CLONIDINE [Suspect]
     Dosage: UNK

REACTIONS (4)
  - SOMNOLENCE [None]
  - LETHARGY [None]
  - HEADACHE [None]
  - FEELING ABNORMAL [None]
